FAERS Safety Report 11197931 (Version 1)
Quarter: 2015Q2

REPORT INFORMATION
  Report Type: Spontaneous
  Country: US (occurrence: US)
  Receive Date: 20150617
  Receipt Date: 20150617
  Transmission Date: 20150821
  Serious: No
  Sender: FDA-Public Use
  Company Number: US-GALDERMA-US15001685

PATIENT
  Age: 45 Year
  Sex: Female

DRUGS (4)
  1. SKINCEUTICALS REDNESS RELIEF LOTION [Concomitant]
     Route: 061
  2. GENTLE MOISTURIZER [Concomitant]
     Route: 061
  3. GENTLE CLEANSER [Concomitant]
     Route: 061
  4. MIRVASO [Suspect]
     Active Substance: BRIMONIDINE TARTRATE
     Indication: ROSACEA
     Dosage: 0.33%
     Route: 061
     Dates: start: 2014, end: 201502

REACTIONS (12)
  - Flushing [Recovering/Resolving]
  - Feeling hot [Recovered/Resolved]
  - Pain of skin [Recovered/Resolved]
  - Skin discomfort [Recovered/Resolved]
  - Activities of daily living impaired [Recovered/Resolved]
  - Erythema [Recovering/Resolving]
  - Rash papular [Recovered/Resolved]
  - Rebound effect [Recovering/Resolving]
  - Dermatitis contact [Recovered/Resolved]
  - Skin irritation [Recovered/Resolved]
  - Telangiectasia [Recovering/Resolving]
  - Skin injury [Not Recovered/Not Resolved]

NARRATIVE: CASE EVENT DATE: 201502
